FAERS Safety Report 9509898 (Version 1)
Quarter: 2013Q3

REPORT INFORMATION
  Report Type: Spontaneous
  Country: US (occurrence: US)
  Receive Date: 20130909
  Receipt Date: 20130909
  Transmission Date: 20140515
  Serious: No
  Sender: FDA-Public Use
  Company Number: US-BRISTOL-MYERS SQUIBB COMPANY-18822312

PATIENT
  Sex: Female
  Weight: 65.76 kg

DRUGS (7)
  1. ABILIFY [Suspect]
  2. PAXIL [Concomitant]
  3. IMURAN [Concomitant]
  4. METOPROLOL [Concomitant]
  5. PRILOSEC [Concomitant]
     Dosage: SOMETIMES BID
  6. CALCIUM [Concomitant]
  7. MULTIVITAMIN [Concomitant]

REACTIONS (1)
  - Drug ineffective [Unknown]
